FAERS Safety Report 24408270 (Version 2)
Quarter: 2025Q1

REPORT INFORMATION
  Report Type: Spontaneous
  Country: FR (occurrence: FR)
  Receive Date: 20241007
  Receipt Date: 20250305
  Transmission Date: 20250408
  Serious: Yes (Hospitalization, Other)
  Sender: BAYER HEALTHCARE PHARMACEUTICALS INC.
  Company Number: None

PATIENT
  Age: 67 Year
  Sex: Male
  Weight: 85 kg

DRUGS (15)
  1. STIVARGA [Suspect]
     Active Substance: REGORAFENIB MONOHYDRATE
     Indication: Colon cancer
     Route: 048
     Dates: start: 20240816, end: 202409
  2. STIVARGA [Suspect]
     Active Substance: REGORAFENIB MONOHYDRATE
     Indication: Metastases to liver
     Route: 048
     Dates: start: 20240916, end: 202409
  3. STIVARGA [Suspect]
     Active Substance: REGORAFENIB MONOHYDRATE
     Indication: Metastases to lung
  4. FLUOROURACIL [Suspect]
     Active Substance: FLUOROURACIL
  5. APIXABAN [Concomitant]
     Active Substance: APIXABAN
  6. ZOPICLONE [Concomitant]
     Active Substance: ZOPICLONE
  7. LANSOPRAZOLE [Concomitant]
     Active Substance: LANSOPRAZOLE
  8. METOPROLOL [Concomitant]
     Active Substance: METOPROLOL
  9. ASPIRIN [Concomitant]
     Active Substance: ASPIRIN
  10. ESCITALOPRAM [Concomitant]
     Active Substance: ESCITALOPRAM OXALATE
  11. FOLIC ACID [Concomitant]
     Active Substance: FOLIC ACID
  12. RAMIPRIL [Concomitant]
     Active Substance: RAMIPRIL
  13. ATORVASTATIN [Concomitant]
     Active Substance: ATORVASTATIN
  14. ACETAMINOPHEN [Concomitant]
     Active Substance: ACETAMINOPHEN
  15. TAMSULOSIN HYDROCHLORIDE [Concomitant]
     Active Substance: TAMSULOSIN HYDROCHLORIDE

REACTIONS (12)
  - Hyperammonaemic encephalopathy [Recovered/Resolved]
  - General physical health deterioration [None]
  - Fall [None]
  - Pyrexia [None]
  - Asterixis [None]
  - Subarachnoid haemorrhage [None]
  - Loss of personal independence in daily activities [None]
  - Bradykinesia [None]
  - Dysarthria [None]
  - Cerebellar ataxia [None]
  - Balance disorder [None]
  - Urinary incontinence [None]

NARRATIVE: CASE EVENT DATE: 20240801
